FAERS Safety Report 6052557-5 (Version None)
Quarter: 2009Q1

REPORT INFORMATION
  Report Type: 
  Country: None (occurrence: None)
  Receive Date: 20090121
  Receipt Date: 20090107
  Transmission Date: 20090719
  Serious: Yes (Hospitalization)
  Sender: FDA-Public Use
  Company Number: CHPA2009US00559

PATIENT
  Sex: Female

DRUGS (4)
  1. MAALOX ANTACID (NCH) (ALUMINUM HYDROXIDE, MAGNESIUM HYDROXIDE) SUSPENS [Suspect]
     Indication: GASTROINTESTINAL ULCER
     Dosage: 3-4 SWIGS QD, ON AND OFF, ORAL; 10 SWIGS QD, ON AND OFF, ORAL
     Route: 048
     Dates: start: 19770101
  2. MAALOX ANTACID (NCH) (ALUMINUM HYDROXIDE, MAGNESIUM HYDROXIDE) SUSPENS [Suspect]
     Indication: GASTROINTESTINAL ULCER
     Dosage: 3-4 SWIGS QD, ON AND OFF, ORAL; 10 SWIGS QD, ON AND OFF, ORAL
     Route: 048
     Dates: start: 19770101
  3. MAALOX MS TOTAL STOMACH RELIEF (NCH) (BISMUTH SUBSALICYLATE) SUSPENSIO [Suspect]
     Indication: GASTROINTESTINAL ULCER
     Dosage: 3-4 SWIGS, ON AND OFF, ORAL, 10 SWIGS QD, ON AND OFF, ORAL
     Route: 048
     Dates: end: 20090109
  4. MAALOX MS TOTAL STOMACH RELIEF (NCH) (BISMUTH SUBSALICYLATE) SUSPENSIO [Suspect]
     Indication: GASTROINTESTINAL ULCER
     Dosage: 3-4 SWIGS, ON AND OFF, ORAL, 10 SWIGS QD, ON AND OFF, ORAL
     Route: 048
     Dates: end: 20090109

REACTIONS (4)
  - DYSPNOEA [None]
  - FAECES DISCOLOURED [None]
  - FATIGUE [None]
  - WRONG TECHNIQUE IN DRUG USAGE PROCESS [None]
